FAERS Safety Report 13548660 (Version 2)
Quarter: 2017Q3

REPORT INFORMATION
  Report Type: Spontaneous
  Country: US (occurrence: US)
  Receive Date: 20170516
  Receipt Date: 20170727
  Transmission Date: 20171127
  Serious: No
  Sender: FDA-Public Use
  Company Number: US-JNJFOC-20170428126

PATIENT
  Age: 24 Year
  Sex: Male
  Weight: 104.33 kg

DRUGS (2)
  1. MENS ROGAINE EXTRA STRENGTH [Suspect]
     Active Substance: MINOXIDIL
     Route: 061
  2. MENS ROGAINE EXTRA STRENGTH [Suspect]
     Active Substance: MINOXIDIL
     Indication: ALOPECIA
     Dosage: 1/2 CAPFUL,MORNING AND NIGHT- PAST TWO WEEKS
     Route: 061
     Dates: start: 201704

REACTIONS (4)
  - Drug administered at inappropriate site [Unknown]
  - Product physical issue [Unknown]
  - Product use complaint [Unknown]
  - Product quality issue [Unknown]
